FAERS Safety Report 4839414-4 (Version None)
Quarter: 2005Q4

REPORT INFORMATION
  Report Type: 
  Country: None (occurrence: None)
  Receive Date: 20051129
  Receipt Date: 20050323
  Transmission Date: 20060501
  Serious: No
  Sender: FDA-Public Use
  Company Number: US-GLAXOSMITHKLINE-A0550914A

PATIENT
  Sex: Female

DRUGS (2)
  1. WELLBUTRIN SR [Suspect]
     Indication: ANXIETY
     Route: 048
  2. WELLBUTRIN XL [Suspect]
     Indication: ANXIETY
     Route: 048

REACTIONS (3)
  - DIZZINESS [None]
  - DRY MOUTH [None]
  - MEDICATION RESIDUE [None]
